FAERS Safety Report 6604306-7 (Version None)
Quarter: 2010Q1

REPORT INFORMATION
  Report Type: 
  Country: None (occurrence: None)
  Receive Date: 20100226
  Receipt Date: 20090813
  Transmission Date: 20100710
  Serious: No
  Sender: FDA-Public Use
  Company Number: A0802126A

PATIENT
  Age: 75 Year
  Sex: Male

DRUGS (3)
  1. LAMICTAL CD [Suspect]
     Dosage: 200MG TWICE PER DAY
     Route: 048
     Dates: start: 20070101
  2. COMBIGAN [Concomitant]
     Route: 047
  3. HYDROXYCINE [Concomitant]
     Indication: PRURITUS

REACTIONS (2)
  - RASH PAPULAR [None]
  - RASH PRURITIC [None]
